FAERS Safety Report 4826142-4 (Version None)
Quarter: 2005Q4

REPORT INFORMATION
  Report Type: 
  Country: None (occurrence: None)
  Receive Date: 20051109
  Receipt Date: 20051026
  Transmission Date: 20060501
  Serious: Yes (Other)
  Sender: FDA-Public Use
  Company Number: 2005-134181-NL

PATIENT
  Age: 39 Year
  Sex: Female

DRUGS (2)
  1. NUVARING [Suspect]
     Indication: CONTRACEPTION
     Dosage: VAGINAL
     Route: 067
     Dates: start: 20051016
  2. TOPROL-XL [Concomitant]

REACTIONS (3)
  - CARDIAC FLUTTER [None]
  - DYSPNOEA [None]
  - NOCTURNAL DYSPNOEA [None]
